FAERS Safety Report 8397479-X (Version None)
Quarter: 2012Q2

REPORT INFORMATION
  Report Type: 
  Country: None (occurrence: None)
  Receive Date: 20120529
  Receipt Date: 20120529
  Transmission Date: 20120825
  Serious: Yes (Other)
  Sender: FDA-Public Use
  Company Number: None

PATIENT
  Age: 19 Year
  Sex: Female

DRUGS (1)
  1. AVEENO POS AGELSS FIRMING BODY LOTION [Suspect]
     Indication: THERAPEUTIC SKIN CARE TOPICAL
     Dosage: A QUARTER, ONCE, TOPICAL
     Route: 061
     Dates: end: 20120514

REACTIONS (4)
  - APPLICATION SITE ERYTHEMA [None]
  - EYE SWELLING [None]
  - APPLICATION SITE PRURITUS [None]
  - APPLICATION SITE URTICARIA [None]
